FAERS Safety Report 9435122 (Version 1)
Quarter: 2013Q3

REPORT INFORMATION
  Report Type: Spontaneous
  Country: GB (occurrence: None)
  Receive Date: 20130730
  Receipt Date: 20130730
  Transmission Date: 20140515
  Serious: Yes (Hospitalization)
  Sender: FDA-Public Use
  Company Number: 2013P1012823

PATIENT
  Age: 59 Year
  Sex: Female

DRUGS (9)
  1. FLUCONAZOLE [Suspect]
     Route: 042
     Dates: start: 20130702, end: 20130702
  2. OMEPRAZOLE [Concomitant]
  3. METOCLOPRAMIDE [Concomitant]
  4. NAPROXEN [Concomitant]
  5. DEXAMETHASONE [Concomitant]
  6. PAROXETINE [Concomitant]
  7. HYOSCINE BUTYLBROMIDE [Concomitant]
  8. LORATADINE [Concomitant]
  9. COLESTYRAMINE [Concomitant]

REACTIONS (2)
  - Convulsion [None]
  - Wrong drug administered [None]
